FAERS Safety Report 17776561 (Version 3)
Quarter: 2020Q2

REPORT INFORMATION
  Report Type: Spontaneous
  Country: PL (occurrence: PL)
  Receive Date: 20200513
  Receipt Date: 20200602
  Transmission Date: 20200714
  Serious: Yes (Other)
  Sender: FDA-Public Use
  Company Number: PL-LUPIN PHARMACEUTICALS INC.-2020-02124

PATIENT
  Age: 51 Year
  Sex: Female
  Weight: 65 kg

DRUGS (10)
  1. LAMOTRIGINE TABLETS [Suspect]
     Active Substance: LAMOTRIGINE
     Dosage: 50 MILLIGRAM, QD
     Route: 048
     Dates: start: 2017
  2. LAMOTRIGINE TABLETS [Suspect]
     Active Substance: LAMOTRIGINE
     Dosage: 200 MILLIGRAM, QD
     Route: 048
     Dates: start: 2017
  3. ARIPIPRAZOLE. [Suspect]
     Active Substance: ARIPIPRAZOLE
     Dosage: 30 MILLIGRAM, QD
     Route: 048
     Dates: start: 2017
  4. LAMOTRIGINE TABLETS [Suspect]
     Active Substance: LAMOTRIGINE
     Indication: AFFECTIVE DISORDER
     Dosage: 25 MILLIGRAM, QD
     Route: 048
     Dates: start: 2017
  5. QUETIAPINE TABLETS [Suspect]
     Active Substance: QUETIAPINE
     Indication: DELUSION
     Dosage: UPTITRATE THE QUETIAPINE DOSE TO 400 MG/D, WHICH TOOK 9 DAYS.
     Route: 048
     Dates: start: 2017
  6. QUETIAPINE TABLETS [Suspect]
     Active Substance: QUETIAPINE
     Indication: AFFECTIVE DISORDER
     Dosage: 50 MILLIGRAM, QD
     Route: 048
     Dates: start: 2017
  7. QUETIAPINE TABLETS [Suspect]
     Active Substance: QUETIAPINE
     Dosage: 400 MILLIGRAM, QD
     Route: 048
     Dates: start: 2017
  8. LAMOTRIGINE TABLETS [Suspect]
     Active Substance: LAMOTRIGINE
     Dosage: 225 MILLIGRAM, QD
     Route: 048
     Dates: start: 2017
  9. ARIPIPRAZOLE. [Suspect]
     Active Substance: ARIPIPRAZOLE
     Indication: DELUSION
     Dosage: 7.5 MILLIGRAM, QD
     Route: 048
     Dates: start: 2017
  10. ARIPIPRAZOLE. [Suspect]
     Active Substance: ARIPIPRAZOLE
     Dosage: UPTITRATED TO THE FINAL DOSE OF 30 MG/D OVER 2 WEEKS
     Route: 048
     Dates: start: 2017

REACTIONS (1)
  - Neuroleptic malignant syndrome [Recovered/Resolved]

NARRATIVE: CASE EVENT DATE: 2017
